FAERS Safety Report 20745578 (Version 1)
Quarter: 2022Q2

REPORT INFORMATION
  Report Type: Spontaneous
  Country: US (occurrence: US)
  Receive Date: 20220425
  Receipt Date: 20220425
  Transmission Date: 20220721
  Serious: Yes (Other)
  Sender: FDA-Public Use
  Company Number: US-PFIZER INC-202200591200

PATIENT
  Age: 66 Year
  Sex: Female

DRUGS (1)
  1. FLUCONAZOLE [Suspect]
     Active Substance: FLUCONAZOLE
     Indication: Fungal infection
     Dosage: TAKES ONE AND THEN ANOTHER TWO WEEKS LATER

REACTIONS (3)
  - Cataract [Unknown]
  - Drug ineffective [Unknown]
  - Off label use [Unknown]
